FAERS Safety Report 14325193 (Version 1)
Quarter: 2017Q4

REPORT INFORMATION
  Report Type: Spontaneous
  Country: US (occurrence: US)
  Receive Date: 20171223
  Receipt Date: 20171223
  Transmission Date: 20180321
  Serious: Yes (Disabling)
  Sender: FDA-Public Use
  Company Number: None

PATIENT
  Sex: Female
  Weight: 112.05 kg

DRUGS (11)
  1. XANAX [Concomitant]
     Active Substance: ALPRAZOLAM
  2. ADDERALL [Concomitant]
     Active Substance: AMPHETAMINE ASPARTATE\AMPHETAMINE SULFATE\DEXTROAMPHETAMINE SACCHARATE\DEXTROAMPHETAMINE SULFATE
  3. TRAMADOL. [Concomitant]
     Active Substance: TRAMADOL
  4. ZOLOFT [Concomitant]
     Active Substance: SERTRALINE HYDROCHLORIDE
  5. FLEXERIL [Concomitant]
     Active Substance: CYCLOBENZAPRINE HYDROCHLORIDE
  6. EPSOM SALT BATHS [Concomitant]
  7. LEVOFLOXACIN. [Suspect]
     Active Substance: LEVOFLOXACIN
     Indication: DYSPHONIA
     Dosage: ?          QUANTITY:7 TABLET(S);?
     Route: 048
     Dates: start: 20170921, end: 20170927
  8. LEVOTHYROXINE. [Concomitant]
     Active Substance: LEVOTHYROXINE
  9. CLARITIN [Concomitant]
     Active Substance: LORATADINE
  10. LEVOFLOXACIN. [Suspect]
     Active Substance: LEVOFLOXACIN
     Indication: OROPHARYNGEAL PAIN
     Dosage: ?          QUANTITY:7 TABLET(S);?
     Route: 048
     Dates: start: 20170921, end: 20170927
  11. VALIUM [Concomitant]
     Active Substance: DIAZEPAM

REACTIONS (46)
  - Aphasia [None]
  - Gait disturbance [None]
  - Blepharospasm [None]
  - Inflammation [None]
  - Visual impairment [None]
  - Dysphemia [None]
  - Balance disorder [None]
  - Tremor [None]
  - Chest pain [None]
  - Personality change [None]
  - Photophobia [None]
  - Tooth disorder [None]
  - Ligament disorder [None]
  - Fatigue [None]
  - Dry mouth [None]
  - Dizziness [None]
  - Abnormal dreams [None]
  - Muscular weakness [None]
  - Headache [None]
  - Anxiety [None]
  - Disturbance in attention [None]
  - Hypoacusis [None]
  - Grip strength decreased [None]
  - Palpitations [None]
  - Muscle twitching [None]
  - Hepatic enzyme increased [None]
  - Feeling abnormal [None]
  - Tooth extraction [None]
  - Muscle spasms [None]
  - Depression [None]
  - Pruritus [None]
  - Functional gastrointestinal disorder [None]
  - Amnesia [None]
  - Loss of consciousness [None]
  - Mood altered [None]
  - Paraesthesia [None]
  - Hypoaesthesia [None]
  - Dysphagia [None]
  - Decreased activity [None]
  - Tendon disorder [None]
  - Nerve injury [None]
  - Head discomfort [None]
  - Pain [None]
  - Agitation [None]
  - Coordination abnormal [None]
  - Denture wearer [None]

NARRATIVE: CASE EVENT DATE: 20170926
